FAERS Safety Report 5327842-2 (Version None)
Quarter: 2007Q1

REPORT INFORMATION
  Report Type: 
  Country: None (occurrence: None)
  Receive Date: 20070223
  Receipt Date: 20060124
  Transmission Date: 20070707
  Serious: Yes (Hospitalization, Other)
  Sender: FDA-Public Use
  Company Number: WAES 0601USA02987

PATIENT
  Age: 60 Year
  Sex: Male

DRUGS (2)
  1. ZOCOR [Suspect]
     Dosage: 80 MG/DAILY/PO
     Route: 048
  2. LOPID [Concomitant]

REACTIONS (2)
  - RENAL FAILURE [None]
  - RHABDOMYOLYSIS [None]
